FAERS Safety Report 15171241 (Version 1)
Quarter: 2018Q3

REPORT INFORMATION
  Report Type: Spontaneous
  Country: US (occurrence: US)
  Receive Date: 20180720
  Receipt Date: 20180720
  Transmission Date: 20181010
  Serious: No
  Sender: FDA-Public Use
  Company Number: US-GLAXOSMITHKLINE-US2018126951

PATIENT
  Sex: Male

DRUGS (1)
  1. TANZEUM [Suspect]
     Active Substance: ALBIGLUTIDE
     Indication: GLYCOSYLATED HAEMOGLOBIN INCREASED
     Dosage: 30 MG, WE
     Route: 058
     Dates: start: 2017

REACTIONS (3)
  - Wrong technique in device usage process [Unknown]
  - Drug dose omission [Recovered/Resolved]
  - Exposure via skin contact [Not Recovered/Not Resolved]

NARRATIVE: CASE EVENT DATE: 2018
